FAERS Safety Report 6338722-8 (Version None)
Quarter: 2009Q3

REPORT INFORMATION
  Report Type: 
  Country: None (occurrence: None)
  Receive Date: 20090903
  Receipt Date: 20090305
  Transmission Date: 20100115
  Serious: No
  Sender: FDA-Public Use
  Company Number: A0771870A

PATIENT
  Age: 38 Year
  Sex: Male

DRUGS (3)
  1. RELENZA [Suspect]
     Dosage: 2APP TWICE PER DAY
     Route: 055
     Dates: start: 20090304
  2. ALBUTEROL [Concomitant]
  3. PULMICORT-100 [Concomitant]

REACTIONS (4)
  - BRONCHOSPASM [None]
  - CHEST DISCOMFORT [None]
  - DYSPNOEA [None]
  - MEDICATION ERROR [None]
